FAERS Safety Report 13073114 (Version 2)
Quarter: 2017Q1

REPORT INFORMATION
  Report Type: Report from Study
  Country: US (occurrence: US)
  Receive Date: 20161229
  Receipt Date: 20170127
  Transmission Date: 20170428
  Serious: No
  Sender: FDA-Public Use
  Company Number: PHEH2016US033956

PATIENT
  Age: 46 Year
  Sex: Male
  Weight: 250 kg

DRUGS (3)
  1. ATORVASTATIN [Concomitant]
     Active Substance: ATORVASTATIN
     Indication: PRODUCT USED FOR UNKNOWN INDICATION
     Dosage: 20 MG, QD
     Route: 065
  2. COSENTYX [Suspect]
     Active Substance: SECUKINUMAB
     Indication: PSORIASIS
     Dosage: 300 MG, QMO
     Route: 030
     Dates: start: 201607
  3. COSENTYX [Suspect]
     Active Substance: SECUKINUMAB
     Dosage: 300 MG, QMO
     Route: 058
     Dates: start: 20161214

REACTIONS (10)
  - Alopecia [Unknown]
  - Tinea capitis [Recovered/Resolved with Sequelae]
  - Kerion [Unknown]
  - Swelling [Unknown]
  - Fungal infection [Unknown]
  - Upper respiratory tract infection [Unknown]
  - Incorrect route of drug administration [Unknown]
  - Pain [Unknown]
  - Folliculitis [Unknown]
  - Pustular psoriasis [Unknown]

NARRATIVE: CASE EVENT DATE: 201609
